FAERS Safety Report 7587257-3 (Version None)
Quarter: 2011Q3

REPORT INFORMATION
  Report Type: 
  Country: None (occurrence: None)
  Receive Date: 20110701
  Receipt Date: 20110628
  Transmission Date: 20111222
  Serious: Yes (Death, Hospitalization)
  Sender: FDA-Public Use
  Company Number: PHHY2011US57626

PATIENT
  Age: 77 Year
  Sex: Male

DRUGS (1)
  1. RIFAMPICIN [Suspect]
     Indication: INFECTION
     Route: 042

REACTIONS (7)
  - PYREXIA [None]
  - NEUTROPHIL COUNT INCREASED [None]
  - TACHYCARDIA [None]
  - EOSINOPHIL COUNT INCREASED [None]
  - DYSPNOEA [None]
  - EOSINOPHILIC PNEUMONIA [None]
  - MULTI-ORGAN DISORDER [None]
